FAERS Safety Report 6430344-3 (Version None)
Quarter: 2009Q4

REPORT INFORMATION
  Report Type: 
  Country: None (occurrence: None)
  Receive Date: 20091106
  Receipt Date: 20091026
  Transmission Date: 20100525
  Serious: Yes (Death, Other)
  Sender: FDA-Public Use
  Company Number: FR-PFIZER INC-2003188438FR

PATIENT
  Age: 67 Year
  Sex: Female
  Weight: 86 kg

DRUGS (3)
  1. EXEMESTANE [Suspect]
     Indication: BREAST CANCER
     Dosage: 25 MG, 1X/DAY
     Route: 048
     Dates: start: 20030305
  2. DETENSIEL [Concomitant]
     Indication: HYPERTENSION
     Dosage: DAILY
     Route: 048
     Dates: start: 19930101
  3. STILNOX [Concomitant]
     Indication: INSOMNIA
     Dosage: DAILY
     Route: 048
     Dates: start: 20020501

REACTIONS (1)
  - PULMONARY EMBOLISM [None]
